FAERS Safety Report 18498442 (Version 2)
Quarter: 2021Q1

REPORT INFORMATION
  Report Type: Spontaneous
  Country: US (occurrence: US)
  Receive Date: 20201112
  Receipt Date: 20210106
  Transmission Date: 20210419
  Serious: Yes (Hospitalization)
  Sender: FDA-Public Use
  Company Number: US-TEVA-2020-US-1846433

PATIENT
  Age: 45 Year
  Sex: Male

DRUGS (3)
  1. CISPLATIN. [Concomitant]
     Active Substance: CISPLATIN
     Indication: TESTICULAR GERM CELL CANCER
     Route: 065
  2. ETOPOSIDE. [Concomitant]
     Active Substance: ETOPOSIDE
     Indication: TESTICULAR GERM CELL CANCER
     Route: 065
  3. BLEOMYCIN [Suspect]
     Active Substance: BLEOMYCIN SULFATE
     Indication: TESTICULAR GERM CELL CANCER
     Dosage: RECEIVED 2 CYCLES, TOTAL OF 150 UNITS
     Route: 065

REACTIONS (6)
  - Subcutaneous emphysema [Recovering/Resolving]
  - Acute respiratory failure [Recovering/Resolving]
  - Organising pneumonia [Recovering/Resolving]
  - Pneumothorax [Recovering/Resolving]
  - Pneumomediastinum [Recovering/Resolving]
  - Pulmonary toxicity [Recovering/Resolving]
